FAERS Safety Report 18124221 (Version 7)
Quarter: 2022Q1

REPORT INFORMATION
  Report Type: Report from Study
  Country: US (occurrence: US)
  Receive Date: 20200807
  Receipt Date: 20220210
  Transmission Date: 20220423
  Serious: Yes (Other)
  Sender: FDA-Public Use
  Company Number: US-SHIRE-US202025308

PATIENT
  Sex: Female

DRUGS (1)
  1. HUMAN IMMUNOGLOBULIN G [Suspect]
     Active Substance: HUMAN IMMUNOGLOBULIN G
     Indication: Primary immunodeficiency syndrome
     Dosage: 17 GRAM, Q2WEEKS
     Route: 065

REACTIONS (6)
  - Venous injury [Unknown]
  - Sinusitis [Unknown]
  - Obstruction [Unknown]
  - Pyrexia [Unknown]
  - Fatigue [Not Recovered/Not Resolved]
  - Feeling abnormal [Unknown]
